FAERS Safety Report 16784138 (Version 1)
Quarter: 2019Q3

REPORT INFORMATION
  Report Type: Spontaneous
  Country: BE (occurrence: BE)
  Receive Date: 20190909
  Receipt Date: 20190909
  Transmission Date: 20191005
  Serious: Yes (Other)
  Sender: FDA-Public Use
  Company Number: BE-ROCHE-2400864

PATIENT
  Sex: Female

DRUGS (1)
  1. ALECENSA [Suspect]
     Active Substance: ALECTINIB HYDROCHLORIDE
     Indication: GILBERT^S SYNDROME
     Route: 048

REACTIONS (3)
  - Haemolysis [Unknown]
  - Off label use [Unknown]
  - Intentional product use issue [Unknown]
